FAERS Safety Report 8910587 (Version 1)
Quarter: 2012Q4

REPORT INFORMATION
  Report Type: 
  Country: US (occurrence: US)
  Receive Date: 20121114
  Receipt Date: 20121114
  Transmission Date: 20130627
  Serious: Yes (Other)
  Sender: FDA-Public Use
  Company Number: US-GLAXOSMITHKLINE-A1000892A

PATIENT
  Age: 39 Year
  Sex: Female

DRUGS (1)
  1. LAMICTAL [Suspect]
     Indication: PRODUCT USED FOR UNKNOWN INDICATION
     Dosage: 100MG Unknown
     Route: 048
     Dates: start: 20081211

REACTIONS (4)
  - Brain neoplasm malignant [Unknown]
  - Tooth loss [Unknown]
  - Tooth disorder [Unknown]
  - Tooth fracture [Unknown]
